FAERS Safety Report 16418455 (Version 1)
Quarter: 2019Q2

REPORT INFORMATION
  Report Type: Spontaneous
  Country: GB (occurrence: GB)
  Receive Date: 20190612
  Receipt Date: 20190612
  Transmission Date: 20190711
  Serious: Yes (Hospitalization, Other)
  Sender: FDA-Public Use
  Company Number: GB-TEVA-2019-GB-1061125

PATIENT
  Age: 56 Year
  Sex: Female
  Weight: 80 kg

DRUGS (9)
  1. SANDOCAL (CALCIUM CARBONATE\CALCIUM GLUBIONATE\SODIUM BICARBONATE) [Suspect]
     Active Substance: CALCIUM CARBONATE\CALCIUM GLUBIONATE\SODIUM BICARBONATE
     Indication: HYPOCALCAEMIA
     Dosage: REDUCED TO TWICE DAILY
     Route: 048
  2. LOPERAMIDE [Concomitant]
     Active Substance: LOPERAMIDE
     Dosage: WHEN REQUIRED
     Route: 065
  3. ALFACALCIDOL [Suspect]
     Active Substance: ALFACALCIDOL
     Indication: HYPOCALCAEMIA
     Dosage: 1.5 MICROGRAM DAILY;
     Route: 065
  4. LANSOPRAZOLE. [Suspect]
     Active Substance: LANSOPRAZOLE
     Route: 065
  5. LEVOTHYROXINE. [Concomitant]
     Active Substance: LEVOTHYROXINE
     Dosage: WHEN REQUIRED
     Route: 065
  6. CITALOPRAM [Concomitant]
     Active Substance: CITALOPRAM HYDROBROMIDE
     Dosage: DAILY, WHEN REQUIRED
     Route: 065
  7. SANDOCAL (CALCIUM CARBONATE\CALCIUM GLUBIONATE\SODIUM BICARBONATE) [Suspect]
     Active Substance: CALCIUM CARBONATE\CALCIUM GLUBIONATE\SODIUM BICARBONATE
     Indication: HYPOCALCAEMIA
     Dosage: THREE TIMES DAILY REDUCED TO TWICE DAILY
     Route: 048
  8. MAGNESIUM [Suspect]
     Active Substance: MAGNESIUM
     Indication: HYPOMAGNESAEMIA
     Route: 048
  9. AMLODIPINE [Concomitant]
     Active Substance: AMLODIPINE BESYLATE
     Route: 065

REACTIONS (4)
  - Gastrooesophageal reflux disease [Recovering/Resolving]
  - Hypomagnesaemia [Unknown]
  - Diarrhoea [Unknown]
  - Gastritis [Unknown]
